FAERS Safety Report 8343035-9 (Version None)
Quarter: 2012Q2

REPORT INFORMATION
  Report Type: 
  Country: None (occurrence: None)
  Receive Date: 20120508
  Receipt Date: 20120427
  Transmission Date: 20120825
  Serious: Yes (Disabling, Other)
  Sender: FDA-Public Use
  Company Number: PHEH2012US007572

PATIENT
  Sex: Female
  Weight: 65.306 kg

DRUGS (5)
  1. GLEEVEC [Suspect]
     Dosage: 400 MG, DAILY
     Route: 048
     Dates: start: 20120110, end: 20120403
  2. NEXIUM [Concomitant]
     Dosage: 40 MG, QD
     Route: 048
  3. LOSARTAN POTASSIUM [Concomitant]
     Dosage: 25 MG, BID
  4. DIURETICS [Concomitant]
     Dosage: UNK
  5. GLEEVEC [Suspect]
     Indication: CHRONIC MYELOID LEUKAEMIA
     Dosage: 400 MG, DAILY
     Route: 048
     Dates: start: 20111228

REACTIONS (14)
  - PAPULE [None]
  - EYELID OEDEMA [None]
  - PRURITUS [None]
  - URTICARIA [None]
  - BLISTER [None]
  - ERYTHEMA [None]
  - RASH [None]
  - SKIN SWELLING [None]
  - FLUSHING [None]
  - EYE OEDEMA [None]
  - SWELLING FACE [None]
  - SKIN FISSURES [None]
  - HYPERSENSITIVITY [None]
  - SWELLING [None]
